FAERS Safety Report 7777176-1 (Version None)
Quarter: 2011Q3

REPORT INFORMATION
  Report Type: 
  Country: None (occurrence: None)
  Receive Date: 20110926
  Receipt Date: 20110920
  Transmission Date: 20111222
  Serious: Yes (Other)
  Sender: FDA-Public Use
  Company Number: JM-JNJFOC-20080704002

PATIENT
  Age: 25 Year
  Sex: Female

DRUGS (4)
  1. COGENTIN [Suspect]
     Indication: BIPOLAR DISORDER
  2. LITHIUM CARBONATE [Suspect]
     Indication: BIPOLAR DISORDER
     Route: 065
  3. MATERNA [Concomitant]
  4. HALDOL [Suspect]
     Indication: BIPOLAR DISORDER

REACTIONS (2)
  - LIPIDS DECREASED [None]
  - MATERNAL EXPOSURE DURING PREGNANCY [None]
